FAERS Safety Report 6574651-2 (Version None)
Quarter: 2010Q1

REPORT INFORMATION
  Report Type: 
  Country: None (occurrence: None)
  Receive Date: 20100201
  Receipt Date: 20100121
  Transmission Date: 20100710
  Serious: Yes (Other)
  Sender: FDA-Public Use
  Company Number: 2010SP004373

PATIENT
  Age: 24 Year
  Sex: Female

DRUGS (3)
  1. REFLEX (MIRTAZAPINE /01293201/) [Suspect]
     Indication: DEPRESSION
     Dosage: 15 MG; PO; 30 MG;PO
     Route: 048
     Dates: start: 20091021, end: 20091106
  2. REFLEX (MIRTAZAPINE /01293201/) [Suspect]
     Indication: DEPRESSION
     Dosage: 15 MG; PO; 30 MG;PO
     Route: 048
     Dates: start: 20091107
  3. BROTIZOLAM [Concomitant]

REACTIONS (1)
  - STATUS EPILEPTICUS [None]
